FAERS Safety Report 17736244 (Version 5)
Quarter: 2020Q2

REPORT INFORMATION
  Report Type: Report from Study
  Country: US (occurrence: US)
  Receive Date: 20200501
  Receipt Date: 20200526
  Transmission Date: 20200714
  Serious: Yes (Death)
  Sender: FDA-Public Use
  Company Number: US-ROCHE-2586209

PATIENT
  Age: 44 Year
  Sex: Female
  Weight: 150 kg

DRUGS (53)
  1. ACETAMINOPHEN. [Concomitant]
     Active Substance: ACETAMINOPHEN
     Route: 065
     Dates: start: 20200402, end: 20200413
  2. AZITHROMYCIN ANHYDROUS. [Concomitant]
     Active Substance: AZITHROMYCIN ANHYDROUS
     Route: 065
     Dates: start: 20200401, end: 20200401
  3. CHLORTHIAZIDE [Concomitant]
     Active Substance: CHLOROTHIAZIDE
     Route: 065
     Dates: start: 20200402, end: 20200402
  4. ENOXAPARIN [Concomitant]
     Active Substance: ENOXAPARIN
     Route: 065
     Dates: start: 20200401, end: 20200401
  5. FENTANYL. [Concomitant]
     Active Substance: FENTANYL
     Route: 065
     Dates: start: 20200401, end: 20200401
  6. MORPHINE [Concomitant]
     Active Substance: MORPHINE
     Indication: PAIN
     Route: 065
     Dates: start: 20200413, end: 20200413
  7. VANCOMYCIN [Concomitant]
     Active Substance: VANCOMYCIN
     Indication: RESPIRATORY TRACT INFECTION
     Route: 065
     Dates: start: 20200408, end: 20200408
  8. VANCOMYCIN [Concomitant]
     Active Substance: VANCOMYCIN
     Route: 065
     Dates: start: 20200413, end: 20200413
  9. MAGNESIUM SULFATE. [Concomitant]
     Active Substance: MAGNESIUM SULFATE
     Route: 065
     Dates: start: 20200408, end: 20200408
  10. CHLORHEXIDINE [Concomitant]
     Active Substance: CHLORHEXIDINE
     Route: 065
     Dates: start: 20200401, end: 20200413
  11. HYDROCORTISONE SODIUM SUCCINATE [Concomitant]
     Active Substance: HYDROCORTISONE SODIUM SUCCINATE
     Route: 065
     Dates: start: 20200404, end: 20200404
  12. POLYETHYLENE GLYCOL [MACROGOL] [Concomitant]
     Route: 065
     Dates: start: 20200406, end: 20200413
  13. ROCURONIUM [Concomitant]
     Active Substance: ROCURONIUM BROMIDE
     Route: 065
     Dates: start: 20200401, end: 20200401
  14. CEFTRIAXONE. [Concomitant]
     Active Substance: CEFTRIAXONE
     Route: 065
     Dates: start: 20200401, end: 20200401
  15. PROPOFOL. [Concomitant]
     Active Substance: PROPOFOL
     Route: 065
     Dates: start: 20200401, end: 20200401
  16. VASOPRESSIN. [Concomitant]
     Active Substance: VASOPRESSIN
     Dosage: 20 UNIT
     Route: 065
     Dates: start: 20200413, end: 20200413
  17. NOREPINEPHRINE. [Concomitant]
     Active Substance: NOREPINEPHRINE
     Indication: HYPOTENSION
     Route: 065
     Dates: start: 20200401, end: 20200402
  18. HEPARIN [Concomitant]
     Active Substance: HEPARIN SODIUM
     Dosage: 2500 UNIT
     Route: 065
     Dates: start: 20200410, end: 20200413
  19. AZITHROMYCIN ANHYDROUS. [Concomitant]
     Active Substance: AZITHROMYCIN ANHYDROUS
     Indication: LOWER RESPIRATORY TRACT INFECTION
     Route: 065
     Dates: start: 20200402, end: 20200405
  20. AZITHROMYCIN ANHYDROUS. [Concomitant]
     Active Substance: AZITHROMYCIN ANHYDROUS
     Route: 065
     Dates: start: 20200401, end: 20200401
  21. ENOXAPARIN [Concomitant]
     Active Substance: ENOXAPARIN
     Route: 065
     Dates: start: 20200402, end: 20200402
  22. ETOMIDATE. [Concomitant]
     Active Substance: ETOMIDATE
     Indication: PAIN
     Route: 065
     Dates: start: 20200401, end: 20200401
  23. FAMOTIDINE. [Concomitant]
     Active Substance: FAMOTIDINE
     Route: 065
     Dates: start: 20200401, end: 20200408
  24. FENTANYL. [Concomitant]
     Active Substance: FENTANYL
     Dosage: 2500 UNIT
     Route: 065
     Dates: start: 20200413, end: 20200413
  25. FUROSEMIDE. [Concomitant]
     Active Substance: FUROSEMIDE
     Route: 065
     Dates: start: 20200402, end: 20200402
  26. FUROSEMIDE. [Concomitant]
     Active Substance: FUROSEMIDE
     Route: 065
     Dates: start: 20200401, end: 20200401
  27. HYDROXYCHLOROQUINE [Concomitant]
     Active Substance: HYDROXYCHLOROQUINE
     Route: 065
     Dates: start: 20200401, end: 20200402
  28. LORAZEPAM. [Concomitant]
     Active Substance: LORAZEPAM
     Route: 065
     Dates: start: 20200413, end: 20200413
  29. PROPOFOL. [Concomitant]
     Active Substance: PROPOFOL
     Route: 065
     Dates: start: 20200402, end: 20200402
  30. DEXMEDETOMIDINE. [Concomitant]
     Active Substance: DEXMEDETOMIDINE
     Route: 065
     Dates: start: 20200401, end: 20200402
  31. CHLOROTHIAZIDE. [Concomitant]
     Active Substance: CHLOROTHIAZIDE
     Route: 065
     Dates: start: 20200402, end: 20200402
  32. HEPARIN [Concomitant]
     Active Substance: HEPARIN SODIUM
     Route: 065
     Dates: start: 20200403, end: 20200404
  33. LIDOCAINE. [Concomitant]
     Active Substance: LIDOCAINE
     Indication: HEART RATE IRREGULAR
     Route: 065
     Dates: start: 20200407, end: 20200407
  34. TOCILIZUMAB. [Suspect]
     Active Substance: TOCILIZUMAB
     Indication: COVID-19 PNEUMONIA
     Dosage: DATE OF MOST RECENT DOSE OF TOCILIZUMAB PRIOR TO SAE ONSET: 03/APR/2020, AT 20:37
     Route: 042
     Dates: start: 20200403
  35. ACETAMINOPHEN. [Concomitant]
     Active Substance: ACETAMINOPHEN
     Indication: PAIN
     Route: 065
     Dates: start: 20200401, end: 20200401
  36. FENTANYL. [Concomitant]
     Active Substance: FENTANYL
     Route: 065
     Dates: start: 20200401, end: 20200405
  37. VANCOMYCIN [Concomitant]
     Active Substance: VANCOMYCIN
     Route: 065
     Dates: start: 20200401, end: 20200401
  38. NOREPINEPHRINE. [Concomitant]
     Active Substance: NOREPINEPHRINE
     Route: 065
     Dates: start: 20200412, end: 20200412
  39. CISATRACURIUM. [Concomitant]
     Active Substance: CISATRACURIUM
     Route: 065
     Dates: start: 20200401, end: 20200402
  40. ALTEPLASE. [Concomitant]
     Active Substance: ALTEPLASE
     Indication: THROMBOSIS
     Route: 065
     Dates: start: 20200412, end: 20200412
  41. CEFTRIAXONE. [Concomitant]
     Active Substance: CEFTRIAXONE
     Indication: LOWER RESPIRATORY TRACT INFECTION
     Route: 065
     Dates: start: 20200402, end: 20200405
  42. CHLORHEXIDINE [Concomitant]
     Active Substance: CHLORHEXIDINE
     Route: 065
     Dates: start: 20200401, end: 20200401
  43. FAMOTIDINE. [Concomitant]
     Active Substance: FAMOTIDINE
     Route: 065
     Dates: start: 20200401, end: 20200413
  44. FENTANYL. [Concomitant]
     Active Substance: FENTANYL
     Indication: PAIN
     Route: 065
     Dates: start: 20200401, end: 20200401
  45. CHLORHEXIDINE [Concomitant]
     Active Substance: CHLORHEXIDINE
     Route: 065
     Dates: start: 20200402, end: 20200412
  46. HYDROCORTISONE SODIUM SUCCINATE [Concomitant]
     Active Substance: HYDROCORTISONE SODIUM SUCCINATE
     Route: 065
     Dates: start: 20200403, end: 20200403
  47. HYDROXYCHLOROQUINE [Concomitant]
     Active Substance: HYDROXYCHLOROQUINE
     Route: 065
     Dates: start: 20200402, end: 20200402
  48. VANCOMYCIN [Concomitant]
     Active Substance: VANCOMYCIN
     Indication: UPPER RESPIRATORY TRACT INFECTION
     Route: 065
     Dates: start: 20200401, end: 20200402
  49. HYDROCORTISONE SODIUM SUCCINATE [Concomitant]
     Active Substance: HYDROCORTISONE SODIUM SUCCINATE
     Indication: INFLAMMATION
     Route: 065
     Dates: start: 20200402, end: 20200402
  50. MIDAZOLAM. [Concomitant]
     Active Substance: MIDAZOLAM
     Route: 065
     Dates: start: 20200413, end: 20200413
  51. PROPOFOL. [Concomitant]
     Active Substance: PROPOFOL
     Indication: ANAESTHESIA
     Route: 065
     Dates: start: 20200402, end: 20200413
  52. VASOPRESSIN. [Concomitant]
     Active Substance: VASOPRESSIN
     Indication: BLOOD PRESSURE INCREASED
     Route: 065
     Dates: start: 20200401, end: 20200404
  53. KETAMINE [Concomitant]
     Active Substance: KETAMINE
     Indication: ANAESTHESIA
     Route: 065
     Dates: start: 20200401, end: 20200402

REACTIONS (1)
  - COVID-19 pneumonia [Fatal]

NARRATIVE: CASE EVENT DATE: 20200413
